FAERS Safety Report 16749001 (Version 2)
Quarter: 2019Q3

REPORT INFORMATION
  Report Type: Spontaneous
  Country: IT (occurrence: IT)
  Receive Date: 20190828
  Receipt Date: 20190913
  Transmission Date: 20191005
  Serious: Yes (Other)
  Sender: FDA-Public Use
  Company Number: IT-TEVA-2019-IT-1097255

PATIENT
  Sex: Male

DRUGS (1)
  1. LEVOFLOXACIN. [Suspect]
     Active Substance: LEVOFLOXACIN
     Indication: OSTEOMYELITIS
     Dosage: 500 MG, QD
     Route: 048

REACTIONS (3)
  - Tendon disorder [Unknown]
  - Neuropathic muscular atrophy [Unknown]
  - Tendon rupture [Unknown]

NARRATIVE: CASE EVENT DATE: 201904
